FAERS Safety Report 11719189 (Version 1)
Quarter: 2015Q4

REPORT INFORMATION
  Report Type: Spontaneous
  Country: US (occurrence: US)
  Receive Date: 20151110
  Receipt Date: 20151110
  Transmission Date: 20160304
  Serious: No
  Sender: FDA-Public Use
  Company Number: US-CTI_01730_2015

PATIENT
  Age: 67 Year
  Sex: Male

DRUGS (5)
  1. MIDODRINE [Concomitant]
     Active Substance: MIDODRINE
     Dosage: DF
  2. BETHKIS [Suspect]
     Active Substance: TOBRAMYCIN
     Indication: BRONCHIECTASIS
     Dosage: 300 MG/4 ML, BID FOR 28 DAYS DF
     Route: 055
     Dates: start: 20150404
  3. NICOTINE. [Concomitant]
     Active Substance: NICOTINE
     Dosage: DF
  4. DRONABINOL. [Concomitant]
     Active Substance: DRONABINOL
     Dosage: DF
  5. SOTALOL. [Concomitant]
     Active Substance: SOTALOL
     Dosage: DF

REACTIONS (3)
  - Product use issue [Not Recovered/Not Resolved]
  - Memory impairment [None]
  - Drug dose omission [Unknown]

NARRATIVE: CASE EVENT DATE: 2015
